FAERS Safety Report 5972989-0 (Version None)
Quarter: 2008Q4

REPORT INFORMATION
  Report Type: 
  Country: None (occurrence: None)
  Receive Date: 20081201
  Receipt Date: 20081125
  Transmission Date: 20090506
  Serious: Yes (Death, Other)
  Sender: FDA-Public Use
  Company Number: PHBS2008DE06452

PATIENT
  Age: 14 Year
  Sex: Male

DRUGS (6)
  1. CYCLOSPORINE [Suspect]
     Indication: STEM CELL TRANSPLANT
  2. METHOTREXATE [Concomitant]
     Indication: STEM CELL TRANSPLANT
  3. BUSULFAN [Concomitant]
  4. CYCLOPHOSPHAMIDE [Concomitant]
  5. MELPHALAN [Concomitant]
  6. ANTI-THYMOCYTE GLOBULIN NOS [Concomitant]

REACTIONS (8)
  - ACUTE GRAFT VERSUS HOST DISEASE [None]
  - ADENOVIRUS INFECTION [None]
  - B-CELL LYMPHOMA [None]
  - BRONCHOPULMONARY ASPERGILLOSIS [None]
  - ENGRAFT FAILURE [None]
  - EPSTEIN-BARR VIRAEMIA [None]
  - LYMPHOPROLIFERATIVE DISORDER [None]
  - SEPSIS SYNDROME [None]
